FAERS Safety Report 9700847 (Version 3)
Quarter: 2013Q4

REPORT INFORMATION
  Report Type: Spontaneous
  Country: US (occurrence: US)
  Receive Date: 20131121
  Receipt Date: 20131128
  Transmission Date: 20140711
  Serious: Yes (Hospitalization)
  Sender: FDA-Public Use
  Company Number: US-RB-059881-13

PATIENT
  Age: 72 Year
  Sex: Female

DRUGS (3)
  1. LANACANE ANTI ITCH MAXIMUM STRENGTH [Suspect]
     Indication: FUNGAL INFECTION
     Dosage: USED 2 TIMES.
     Route: 061
     Dates: start: 20131030
  2. LANACANE ANTI ITCH MAXIMUM STRENGTH [Suspect]
  3. MONISTAT [Concomitant]
     Indication: PRODUCT USED FOR UNKNOWN INDICATION
     Dosage: UNKNOWN
     Route: 048

REACTIONS (8)
  - Vulvovaginal swelling [Recovering/Resolving]
  - Vulvovaginal burning sensation [Recovering/Resolving]
  - Vulvovaginal pruritus [Recovering/Resolving]
  - Vulvovaginal pain [Recovering/Resolving]
  - Erythema [Recovering/Resolving]
  - Contraindication to medical treatment [Recovering/Resolving]
  - Off label use [Recovering/Resolving]
  - Expired drug administered [Recovering/Resolving]
